FAERS Safety Report 8438619-3 (Version None)
Quarter: 2012Q2

REPORT INFORMATION
  Report Type: 
  Country: None (occurrence: None)
  Receive Date: 20120615
  Receipt Date: 20120611
  Transmission Date: 20120825
  Serious: No
  Sender: FDA-Public Use
  Company Number: US-PFIZER INC-2012140354

PATIENT
  Sex: Female
  Weight: 91 kg

DRUGS (4)
  1. COZAAR [Concomitant]
     Indication: HYPERTENSION
     Dosage: UNK
  2. TIKOSYN [Suspect]
     Indication: CARDIAC DISORDER
     Dosage: 250 UG, 2X/DAY
     Route: 048
     Dates: start: 20111115
  3. METOPROLOL [Concomitant]
     Indication: HYPERTENSION
     Dosage: 25 MG, 1X/DAY
  4. INSULIN [Concomitant]
     Indication: DIABETES MELLITUS
     Dosage: 70/30, 1X/DAY

REACTIONS (2)
  - VISUAL IMPAIRMENT [None]
  - EYE DISORDER [None]
